FAERS Safety Report 8417969-0 (Version None)
Quarter: 2012Q2

REPORT INFORMATION
  Report Type: 
  Country: None (occurrence: None)
  Receive Date: 20120607
  Receipt Date: 20120524
  Transmission Date: 20120825
  Serious: Yes (Death, Other)
  Sender: FDA-Public Use
  Company Number: US-RANBAXY-2012US-56809

PATIENT
  Sex: Female
  Weight: 81 kg

DRUGS (2)
  1. ATORVASTATIN CALCIUM [Suspect]
     Indication: BLOOD CHOLESTEROL INCREASED
     Dosage: 20MG/DAY
     Route: 065
     Dates: start: 20120101
  2. HYZAAR [Suspect]
     Indication: HYPERTENSION
     Dosage: 50+12.5MG/DAY
     Route: 065

REACTIONS (1)
  - RASH MACULAR [None]
